FAERS Safety Report 25328964 (Version 2)
Quarter: 2025Q2

REPORT INFORMATION
  Report Type: Spontaneous
  Country: DE (occurrence: DE)
  Receive Date: 20250519
  Receipt Date: 20250520
  Transmission Date: 20250716
  Serious: Yes (Hospitalization, Other)
  Sender: AUROBINDO
  Company Number: DE-AUROBINDO-AUR-APL-2025-025309

PATIENT
  Age: 17 Year
  Sex: Female

DRUGS (18)
  1. AMLODIPINE [Suspect]
     Active Substance: AMLODIPINE BESYLATE
     Indication: Neurogenic hypertension
     Route: 048
     Dates: start: 202210
  2. HYDROCHLOROTHIAZIDE [Suspect]
     Active Substance: HYDROCHLOROTHIAZIDE
     Indication: Neurogenic hypertension
     Dosage: 25 MILLIGRAM, ONCE A DAY (0-1-0)
     Route: 048
     Dates: start: 202210
  3. METOPROLOL [Suspect]
     Active Substance: METOPROLOL
     Indication: Neurogenic hypertension
     Dosage: 50 MILLIGRAM, TWO TIMES A DAY (1-0-1, METOPROLOL TARTRATE)
     Route: 065
     Dates: start: 202210
  4. METOPROLOL [Suspect]
     Active Substance: METOPROLOL
     Indication: Seizure
     Dosage: 47.5 MILLIGRAM, ONCE A DAY (1-0-0, METOPROLOL SUCCINATE)
     Route: 065
     Dates: start: 202212
  5. METOPROLOL [Suspect]
     Active Substance: METOPROLOL
     Indication: Hypertensive emergency
  6. RAMIPRIL [Suspect]
     Active Substance: RAMIPRIL
     Indication: Neurogenic hypertension
     Dosage: 10 MILLIGRAM, ONCE A DAY (0-0-1)
     Route: 048
     Dates: start: 202210
  7. SPIRONOLACTONE [Suspect]
     Active Substance: SPIRONOLACTONE
     Indication: Hypertensive emergency
     Dosage: 25 MILLIGRAM, TWO TIMES A DAY (1-0-1)
     Route: 048
  8. SPIRONOLACTONE [Suspect]
     Active Substance: SPIRONOLACTONE
     Indication: Seizure
  9. AMLODIPINE [Concomitant]
     Active Substance: AMLODIPINE BESYLATE
     Indication: Neurogenic hypertension
     Dosage: 5 MILLIGRAM/KILOGRAM, TWO TIMES A DAY
     Route: 065
  10. METOPROLOL [Concomitant]
     Active Substance: METOPROLOL
     Indication: Neurogenic hypertension
     Dosage: 47.5 MILLIGRAM/KILOGRAM, ONCE A DAY
     Route: 065
  11. CLONIDINE [Concomitant]
     Active Substance: CLONIDINE
     Indication: Neurogenic hypertension
     Dosage: 0.15 MILLIGRAM, TWO TIMES A DAY (1-0-1)
     Route: 065
     Dates: start: 202210
  12. CLONIDINE [Concomitant]
     Active Substance: CLONIDINE
     Indication: Hypertensive emergency
     Route: 042
     Dates: start: 202212
  13. CLONIDINE [Concomitant]
     Active Substance: CLONIDINE
     Indication: Seizure
     Dosage: 0.15 MILLIGRAM, TWO TIMES A DAY (2-0-2)
     Route: 065
     Dates: start: 202212
  14. DIHYDRALAZINE [Concomitant]
     Active Substance: DIHYDRALAZINE
     Indication: Hypertensive emergency
     Route: 042
     Dates: start: 202212
  15. DIHYDRALAZINE [Concomitant]
     Active Substance: DIHYDRALAZINE
     Indication: Seizure
     Dosage: 12.5 MILLIGRAM, 3 TIMES A DAY (1-1-1)
     Route: 048
     Dates: start: 202212
  16. MINOXIDIL [Concomitant]
     Active Substance: MINOXIDIL
     Indication: Hypertensive emergency
     Dosage: 5 MILLIGRAM, TWO TIMES A DAY ( 1-0-1)
     Route: 048
     Dates: start: 202212
  17. MINOXIDIL [Concomitant]
     Active Substance: MINOXIDIL
     Indication: Seizure
  18. NIFEDIPINE [Concomitant]
     Active Substance: NIFEDIPINE
     Indication: Neurogenic hypertension
     Dosage: 20 MILLIGRAM, 3 TIMES A DAY (1-1-1)
     Route: 048
     Dates: start: 202210

REACTIONS (1)
  - Drug ineffective [Unknown]
